FAERS Safety Report 6700191-3 (Version None)
Quarter: 2010Q2

REPORT INFORMATION
  Report Type: 
  Country: None (occurrence: None)
  Receive Date: 20100426
  Receipt Date: 20090925
  Transmission Date: 20101027
  Serious: Yes (Other)
  Sender: FDA-Public Use
  Company Number: WAES 0910USA00132

PATIENT
  Age: 74 Year
  Sex: Female
  Weight: 59.8748 kg

DRUGS (10)
  1. SINGULAIR [Suspect]
     Dosage: PO
     Route: 048
  2. ACTONEL [Concomitant]
  3. CLINORIL [Concomitant]
  4. PREMARIN [Concomitant]
  5. TIAZAC [Concomitant]
  6. ASPIRIN [Concomitant]
  7. OMEGA-3 MARINE TRIGLYCERIDES [Concomitant]
  8. OMEPRAZOLE [Concomitant]
  9. SIMVASTATIN [Concomitant]
  10. VITAMIN D (UNSPECIFIED) [Concomitant]

REACTIONS (2)
  - DEPRESSION [None]
  - NIGHTMARE [None]
